FAERS Safety Report 10162230 (Version 2)
Quarter: 2014Q2

REPORT INFORMATION
  Report Type: Spontaneous
  Country: FI (occurrence: FI)
  Receive Date: 20140509
  Receipt Date: 20140509
  Transmission Date: 20141212
  Serious: Yes (Disabling)
  Sender: FDA-Public Use
  Company Number: FI-SA-2014SA041846

PATIENT
  Age: 38 Year
  Sex: Female

DRUGS (4)
  1. LEMTRADA [Suspect]
     Indication: PRODUCT USED FOR UNKNOWN INDICATION
     Route: 042
     Dates: start: 20140324
  2. METHYLPREDNISOLONE [Concomitant]
     Indication: PREMEDICATION
  3. METHYLPREDNISOLONE [Concomitant]
     Indication: PREMEDICATION
  4. CORTISONE [Concomitant]

REACTIONS (11)
  - Impaired work ability [Not Recovered/Not Resolved]
  - Ataxia [Not Recovered/Not Resolved]
  - Bradycardia [Unknown]
  - Urticaria [Unknown]
  - Headache [Unknown]
  - Asthenia [Unknown]
  - Eye disorder [Unknown]
  - General physical health deterioration [Not Recovered/Not Resolved]
  - Dizziness [Not Recovered/Not Resolved]
  - Gait disturbance [Not Recovered/Not Resolved]
  - Condition aggravated [Unknown]
